FAERS Safety Report 18535496 (Version 1)
Quarter: 2020Q4

REPORT INFORMATION
  Report Type: Spontaneous
  Country: US (occurrence: US)
  Receive Date: 20201123
  Receipt Date: 20201123
  Transmission Date: 20210114
  Serious: Yes (Other)
  Sender: FDA-Public Use
  Company Number: US-TEVA-2020-US-1851489

PATIENT
  Age: 72 Year
  Sex: Male

DRUGS (1)
  1. FENTANYL CITRATE. [Suspect]
     Active Substance: FENTANYL CITRATE
     Indication: PAIN
     Dosage: ON IT FOR 20 YEARS
     Route: 065

REACTIONS (8)
  - Pharyngeal disorder [Unknown]
  - Throat cancer [Unknown]
  - Chronic obstructive pulmonary disease [Unknown]
  - Suicidal ideation [Unknown]
  - Therapeutic product effect decreased [Unknown]
  - Odynophagia [Unknown]
  - Aspiration [Unknown]
  - Aptyalism [Unknown]
